FAERS Safety Report 4421074-8 (Version None)
Quarter: 2004Q3

REPORT INFORMATION
  Report Type: 
  Country: None (occurrence: None)
  Receive Date: 20040707
  Receipt Date: 20040324
  Transmission Date: 20050211
  Serious: Yes (Other)
  Sender: FDA-Public Use
  Company Number: 362543

PATIENT
  Sex: Male

DRUGS (2)
  1. FUZEON [Suspect]
     Dosage: SUBCUTANEOUS
     Route: 058
     Dates: start: 20040315
  2. ABACAVIR (ABACAVIR SUCCINATE) [Concomitant]

REACTIONS (1)
  - RASH MACULO-PAPULAR [None]
